FAERS Safety Report 13373973 (Version 1)
Quarter: 2017Q1

REPORT INFORMATION
  Report Type: Spontaneous
  Country: US (occurrence: US)
  Receive Date: 20170327
  Receipt Date: 20170327
  Transmission Date: 20170429
  Serious: No
  Sender: FDA-Public Use
  Company Number: None

PATIENT
  Sex: Male
  Weight: 108.96 kg

DRUGS (1)
  1. AMIODARONE 200MG TABLETS [Suspect]
     Active Substance: AMIODARONE
     Indication: HEART RATE INCREASED

REACTIONS (5)
  - Tremor [None]
  - Gait disturbance [None]
  - Balance disorder [None]
  - Dysstasia [None]
  - Coordination abnormal [None]
